FAERS Safety Report 6936608-9 (Version None)
Quarter: 2010Q3

REPORT INFORMATION
  Report Type: 
  Country: None (occurrence: None)
  Receive Date: 20100818
  Receipt Date: 20100805
  Transmission Date: 20110219
  Serious: Yes (Other)
  Sender: FDA-Public Use
  Company Number: ZYD-10-AE-186

PATIENT
  Age: 29 Year
  Sex: Male

DRUGS (1)
  1. RIBAVIRIN [Suspect]

REACTIONS (6)
  - CHEST PAIN [None]
  - DYSPEPSIA [None]
  - DYSPHAGIA [None]
  - INSOMNIA [None]
  - OROPHARYNGEAL PAIN [None]
  - TOOTH EXTRACTION [None]
